FAERS Safety Report 7432143-2 (Version None)
Quarter: 2011Q1

REPORT INFORMATION
  Report Type: 
  Country: None (occurrence: None)
  Receive Date: 20110302
  Receipt Date: 20101025
  Transmission Date: 20110831
  Serious: No
  Sender: FDA-Public Use
  Company Number: 8053107

PATIENT
  Sex: Female
  Weight: 56.6996 kg

DRUGS (2)
  1. PRENATAL VITAMINS [Concomitant]
  2. CERTOLIZUMAB PEGOL [Suspect]
     Indication: CROHN'S DISEASE
     Dosage: 400 MG 1X/MONTH SUBCUTANEOUS
     Route: 058
     Dates: start: 20090319

REACTIONS (1)
  - DRUG EXPOSURE DURING PREGNANCY [None]
